FAERS Safety Report 6208670-2 (Version None)
Quarter: 2009Q2

REPORT INFORMATION
  Report Type: 
  Country: None (occurrence: None)
  Receive Date: 20090529
  Receipt Date: 20090520
  Transmission Date: 20091009
  Serious: Yes (Other)
  Sender: FDA-Public Use
  Company Number: US-JNJFOC-20090505275

PATIENT
  Age: 27 Year
  Sex: Male

DRUGS (10)
  1. INVEGA [Suspect]
     Indication: SCHIZOAFFECTIVE DISORDER
     Route: 048
  2. ABILIFY [Concomitant]
     Indication: DRUG USE FOR UNKNOWN INDICATION
  3. WELLBUTRIN XL [Concomitant]
     Indication: DRUG USE FOR UNKNOWN INDICATION
  4. REMERON [Concomitant]
     Indication: DRUG USE FOR UNKNOWN INDICATION
  5. LITHIUM [Concomitant]
     Indication: DRUG USE FOR UNKNOWN INDICATION
  6. OTHER THERAPEUTIC PRODUCT [Concomitant]
     Indication: DRUG USE FOR UNKNOWN INDICATION
  7. FISH OIL [Concomitant]
     Indication: DRUG USE FOR UNKNOWN INDICATION
  8. ATIVAN [Concomitant]
     Indication: DRUG USE FOR UNKNOWN INDICATION
  9. COLACE [Concomitant]
     Indication: DRUG USE FOR UNKNOWN INDICATION
  10. KLONOPIN [Concomitant]
     Indication: DRUG USE FOR UNKNOWN INDICATION

REACTIONS (1)
  - AKATHISIA [None]
